FAERS Safety Report 5762532-3 (Version None)
Quarter: 2008Q2

REPORT INFORMATION
  Report Type: 
  Country: None (occurrence: None)
  Receive Date: 20080609
  Receipt Date: 20080528
  Transmission Date: 20081010
  Serious: Yes (Other)
  Sender: FDA-Public Use
  Company Number: B0360174A

PATIENT
  Age: 63 Year
  Sex: Female

DRUGS (16)
  1. PAROXETINE HCL [Suspect]
     Indication: TEARFULNESS
     Route: 065
     Dates: start: 20010516
  2. DIAZEPAM [Concomitant]
     Dates: start: 19850401
  3. XANAX [Concomitant]
     Dates: start: 20011206
  4. TRAZODONE HCL [Concomitant]
     Dates: start: 20020808
  5. EFFEXOR [Concomitant]
     Dates: start: 20020106
  6. PROMETHAZINE [Concomitant]
     Dates: start: 20010701
  7. ZOPICLONE [Concomitant]
     Dates: start: 20011101
  8. MIRTAZAPINE [Concomitant]
     Dates: start: 20030801
  9. DULOXETINE [Concomitant]
  10. STEROIDS [Concomitant]
     Dates: start: 20070101
  11. QUETIAPINE FUMARATE [Concomitant]
     Dates: start: 20070301
  12. MELATONIN [Concomitant]
     Dates: start: 20070801
  13. DIHYDROCODEINE [Concomitant]
  14. ACETAMINOPHEN W/ CODEINE [Concomitant]
  15. TRAMADOL HCL [Concomitant]
     Dates: start: 20071201
  16. LEVOTHYROXINE SODIUM [Concomitant]
     Dates: start: 20080515

REACTIONS (23)
  - AGITATION [None]
  - ALOPECIA [None]
  - ANORGASMIA [None]
  - ANXIETY [None]
  - ARTHRALGIA [None]
  - CONFUSIONAL STATE [None]
  - DEPRESSED MOOD [None]
  - DRUG WITHDRAWAL SYNDROME [None]
  - HALLUCINATION [None]
  - HEADACHE [None]
  - INSOMNIA [None]
  - LETHARGY [None]
  - LIBIDO DECREASED [None]
  - LOSS OF LIBIDO [None]
  - MORBID THOUGHTS [None]
  - NAUSEA [None]
  - NIGHTMARE [None]
  - ONYCHOCLASIS [None]
  - PSYCHIATRIC SYMPTOM [None]
  - RESTLESSNESS [None]
  - TEARFULNESS [None]
  - WEIGHT INCREASED [None]
  - WITHDRAWAL SYNDROME [None]
